FAERS Safety Report 24797715 (Version 1)
Quarter: 2025Q1

REPORT INFORMATION
  Report Type: Spontaneous
  Country: IL (occurrence: IL)
  Receive Date: 20250102
  Receipt Date: 20250102
  Transmission Date: 20250409
  Serious: Yes (Hospitalization)
  Sender: STRIDES
  Company Number: IL-STRIDES ARCOLAB LIMITED-2024SP017242

PATIENT
  Age: 34 Year
  Sex: Male

DRUGS (3)
  1. LEVETIRACETAM [Suspect]
     Active Substance: LEVETIRACETAM
     Indication: Epilepsy
     Route: 065
  2. OFLOXACIN [Suspect]
     Active Substance: OFLOXACIN
     Indication: Antibiotic therapy
     Route: 048
  3. DEXAMETHASONE [Suspect]
     Active Substance: DEXAMETHASONE
     Indication: Astrocytoma malignant
     Route: 065

REACTIONS (1)
  - Seizure [Unknown]
